FAERS Safety Report 9213324 (Version 1)
Quarter: 2013Q2

REPORT INFORMATION
  Report Type: Spontaneous
  Country: US (occurrence: None)
  Receive Date: 20130404
  Receipt Date: 20130404
  Transmission Date: 20140414
  Serious: Yes (Other)
  Sender: FDA-Public Use
  Company Number: None

PATIENT
  Age: 57 Year
  Sex: Male
  Weight: 83.46 kg

DRUGS (1)
  1. ATORVASTATIN [Suspect]
     Indication: BLOOD CHOLESTEROL INCREASED
     Route: 048
     Dates: start: 20120910, end: 20130331

REACTIONS (7)
  - Haemolytic anaemia [None]
  - Myalgia [None]
  - Headache [None]
  - Chromaturia [None]
  - Fatigue [None]
  - Dyspnoea [None]
  - Loss of consciousness [None]
